FAERS Safety Report 9998325 (Version 1)
Quarter: 2014Q1

REPORT INFORMATION
  Report Type: Other
  Country: GB (occurrence: GB)
  Receive Date: 20140312
  Receipt Date: 20140312
  Transmission Date: 20141002
  Serious: Yes (Other)
  Sender: FDA-Public Use
  Company Number: GB-SUN PHARMACEUTICAL INDUSTRIES LTD-2014SUN00525

PATIENT
  Age: 25 Year
  Sex: Female
  Weight: 79 kg

DRUGS (5)
  1. VENLAFAXINE HYDROCHLORIDE 37.5MG TABLET [Suspect]
     Indication: DEPRESSION
     Dosage: 75 MG, UNK
     Route: 065
     Dates: start: 20120515
  2. VENLAFAXINE HYDROCHLORIDE 37.5MG TABLET [Suspect]
     Dosage: 225 MG, OD
     Route: 065
  3. VENLAFAXINE HYDROCHLORIDE 37.5MG TABLET [Suspect]
     Dosage: 150 MG, UNK
     Route: 065
  4. VENLAFAXINE HYDROCHLORIDE 37.5MG TABLET [Suspect]
     Dosage: 75 MG, UNK
     Route: 065
     Dates: end: 20130405
  5. SERTRALINE HYDROCHLORIDE [Suspect]
     Indication: DEPRESSION
     Dosage: 50 MG, OD
     Route: 065
     Dates: start: 20130321

REACTIONS (3)
  - Pre-eclampsia [Unknown]
  - Drug withdrawal syndrome [Unknown]
  - Exposure during pregnancy [Unknown]
